FAERS Safety Report 18512993 (Version 1)
Quarter: 2020Q4

REPORT INFORMATION
  Report Type: Spontaneous
  Country: US (occurrence: US)
  Receive Date: 20201117
  Receipt Date: 20201117
  Transmission Date: 20210114
  Serious: No
  Sender: FDA-Public Use
  Company Number: US-PFIZER INC-2020401305

PATIENT
  Age: 67 Year
  Sex: Female
  Weight: 54.79 kg

DRUGS (10)
  1. METHOTREXATE. [Concomitant]
     Active Substance: METHOTREXATE
     Dosage: 2.5 MG
  2. SULFASALAZINE. [Concomitant]
     Active Substance: SULFASALAZINE
     Dosage: 500 MG
  3. VIT D [Concomitant]
     Active Substance: VITAMIN D NOS
     Dosage: 10 UG
  4. MAGNESIUM [Concomitant]
     Active Substance: MAGNESIUM
     Dosage: 250 MG
  5. DICLOFENAC [Concomitant]
     Active Substance: DICLOFENAC
     Dosage: 35 MG
  6. XELJANZ [Suspect]
     Active Substance: TOFACITINIB CITRATE
     Indication: RHEUMATOID ARTHRITIS
     Dosage: 5 MG, DAILY
     Route: 048
     Dates: start: 202007, end: 202008
  7. CALCIUM [Concomitant]
     Active Substance: CALCIUM
     Dosage: 500 MG (CALCIUM 500 MG-100 TAB CHEW)
  8. SYNTHROID [Concomitant]
     Active Substance: LEVOTHYROXINE SODIUM
     Dosage: 25 UG
  9. IRON [Concomitant]
     Active Substance: IRON
     Dosage: UNK (IRON 325(65) MG TABLET)
  10. ZINC. [Concomitant]
     Active Substance: ZINC
     Dosage: 50 MG

REACTIONS (4)
  - Pain [Recovering/Resolving]
  - Joint swelling [Recovering/Resolving]
  - Product dose omission issue [Unknown]
  - Arthralgia [Recovering/Resolving]

NARRATIVE: CASE EVENT DATE: 202008
